FAERS Safety Report 25115682 (Version 1)
Quarter: 2025Q1

REPORT INFORMATION
  Report Type: Spontaneous
  Country: RU (occurrence: RU)
  Receive Date: 20250325
  Receipt Date: 20250325
  Transmission Date: 20250409
  Serious: Yes (Other)
  Sender: ABBVIE
  Company Number: RU-ABBOTT-2025A-1397530

PATIENT
  Age: 25 Year
  Sex: Female
  Weight: 33 kg

DRUGS (1)
  1. CREON [Suspect]
     Active Substance: PANCRELIPASE AMYLASE\PANCRELIPASE LIPASE\PANCRELIPASE PROTEASE
     Indication: Cystic fibrosis pancreatic
     Dosage: 25000 IU, 10 CAPSULES 3 TIMES A DAY (750,000 IU PER DAY)
     Route: 048
     Dates: start: 20230814, end: 20230819

REACTIONS (2)
  - Steatorrhoea [Recovered/Resolved]
  - Abnormal loss of weight [Recovered/Resolved]

NARRATIVE: CASE EVENT DATE: 20230815
